FAERS Safety Report 9801415 (Version 2)
Quarter: 2014Q2

REPORT INFORMATION
  Report Type: Spontaneous
  Country: US (occurrence: US)
  Receive Date: 20140107
  Receipt Date: 20140401
  Transmission Date: 20141212
  Serious: Yes (Congenital Anomaly, Other)
  Sender: FDA-Public Use
  Company Number: US-PFIZER INC-2014000823

PATIENT
  Sex: Male

DRUGS (11)
  1. ZOLOFT [Suspect]
     Indication: ANXIETY
     Dosage: UNK
     Route: 064
     Dates: start: 1990, end: 2004
  2. ZOLOFT [Suspect]
     Indication: DEPRESSION
  3. ZOLOFT [Suspect]
     Indication: AFFECTIVE DISORDER
  4. TEGRETOL [Concomitant]
     Dosage: UNK
     Route: 064
  5. THORAZINE [Concomitant]
     Dosage: UNK
     Route: 064
  6. ZANTAC [Concomitant]
     Dosage: UNK
     Route: 064
  7. BABY ASPIRIN [Concomitant]
     Dosage: UNK
     Route: 064
  8. FOLATE [Concomitant]
     Dosage: UNK
     Route: 064
  9. PRENATAL VITAMINS [Concomitant]
     Dosage: UNK
     Route: 064
  10. VITAMIN K [Concomitant]
     Dosage: UNK
     Route: 064
  11. BENADRYL [Concomitant]
     Dosage: UNK
     Route: 064

REACTIONS (5)
  - Maternal exposure during pregnancy [Unknown]
  - Ventricular septal defect [Unknown]
  - Patent ductus arteriosus [Unknown]
  - Coarctation of the aorta [Unknown]
  - Atrial septal defect [Unknown]
